FAERS Safety Report 17036285 (Version 1)
Quarter: 2019Q4

REPORT INFORMATION
  Report Type: Spontaneous
  Country: US (occurrence: US)
  Receive Date: 20191114
  Receipt Date: 20191114
  Transmission Date: 20200122
  Serious: No
  Sender: FDA-Public Use
  Company Number: None

PATIENT
  Age: 59 Year
  Sex: Female

DRUGS (1)
  1. DOTTI [Suspect]
     Active Substance: ESTRADIOL
     Dosage: ?          OTHER FREQUENCY:TWICE WEEKLY;?
     Route: 062
     Dates: start: 20191024, end: 20191101

REACTIONS (3)
  - Treatment failure [None]
  - Product substitution issue [None]
  - Hyperhidrosis [None]

NARRATIVE: CASE EVENT DATE: 20191024
